FAERS Safety Report 23791483 (Version 1)
Quarter: 2024Q2

REPORT INFORMATION
  Report Type: Spontaneous
  Country: SK (occurrence: SK)
  Receive Date: 20240429
  Receipt Date: 20240429
  Transmission Date: 20240715
  Serious: Yes (Hospitalization, Other)
  Sender: FDA-Public Use
  Company Number: SK-HALEON-2170414

PATIENT
  Age: 80 Year
  Sex: Male

DRUGS (1)
  1. DICLOFENAC [Suspect]
     Active Substance: DICLOFENAC
     Indication: Product used for unknown indication
     Dosage: PER DAY

REACTIONS (5)
  - Gastrointestinal disorder [Unknown]
  - Stenosis [Unknown]
  - Anaemia [Unknown]
  - Dyspepsia [Unknown]
  - Weight decreased [Unknown]
